FAERS Safety Report 6609978-9 (Version None)
Quarter: 2010Q1

REPORT INFORMATION
  Report Type: 
  Country: None (occurrence: None)
  Receive Date: 20100302
  Receipt Date: 20100215
  Transmission Date: 20100710
  Serious: Yes (Hospitalization)
  Sender: FDA-Public Use
  Company Number: US-ROCHE-675642

PATIENT
  Sex: Male
  Weight: 96.2 kg

DRUGS (24)
  1. BEVACIZUMAB [Suspect]
     Dosage: DOSE: 10 MG/KG
     Route: 042
     Dates: start: 20040909, end: 20050629
  2. BEVACIZUMAB [Suspect]
     Dosage: DOSE: 10 MG/KG
     Route: 042
     Dates: start: 20050630, end: 20080820
  3. BEVACIZUMAB [Suspect]
     Dosage: DOSE: 10 MG/KG
     Route: 042
     Dates: start: 20080831, end: 20090826
  4. BEVACIZUMAB [Suspect]
     Dosage: DOSE: 10 MG/KG
     Route: 042
     Dates: start: 20090827, end: 20091208
  5. ERLOTINIB [Suspect]
     Route: 048
     Dates: start: 20040909, end: 20050201
  6. ERLOTINIB [Suspect]
     Route: 048
     Dates: start: 20050209, end: 20071024
  7. ERLOTINIB [Suspect]
     Route: 048
     Dates: start: 20071025, end: 20091208
  8. GLEEVEC [Suspect]
     Route: 048
     Dates: start: 20040909, end: 20050504
  9. GLEEVEC [Suspect]
     Route: 048
     Dates: start: 20050505, end: 20050728
  10. GLEEVEC [Suspect]
     Route: 048
     Dates: start: 20050805, end: 20050922
  11. RYTHMOL [Concomitant]
     Dates: start: 20070719
  12. LOVASTATIN [Concomitant]
     Dosage: FREQUENCY: QD
     Dates: start: 20070719
  13. PREVACID [Concomitant]
     Dosage: FREQUENCY: QD
     Dates: start: 20090113
  14. VALIUM [Concomitant]
     Indication: VERTIGO
     Dosage: FREQUENCY: PRN
     Dates: start: 20090113
  15. SOMA [Concomitant]
     Dosage: FREQUENCY: PRN
     Dates: start: 20091119
  16. ASPIRIN [Concomitant]
     Dosage: STOPPED ON AN UNKNOWN DATE 4 MONTHS AGO.
     Dates: start: 20040720
  17. METAMUCIL-2 [Concomitant]
     Dates: start: 20040720
  18. HUMULIN 70/30 [Concomitant]
     Dates: start: 20040720
  19. HUMULIN R [Concomitant]
     Dates: start: 20040720
  20. ZOCOR [Concomitant]
  21. ENOXAPARIN SODIUM [Concomitant]
     Dates: start: 20060704
  22. LEVAQUIN [Concomitant]
     Dates: start: 20060704
  23. ALLOPURINOL [Concomitant]
     Dates: start: 20060704
  24. ZELNORM [Concomitant]
     Dates: start: 20060704

REACTIONS (3)
  - CEREBROVASCULAR ACCIDENT [None]
  - GAIT DISTURBANCE [None]
  - ISCHAEMIC STROKE [None]
